FAERS Safety Report 7829142-5 (Version None)
Quarter: 2011Q4

REPORT INFORMATION
  Report Type: 
  Country: None (occurrence: None)
  Receive Date: 20111020
  Receipt Date: 20111011
  Transmission Date: 20120403
  Serious: Yes (Other)
  Sender: FDA-Public Use
  Company Number: PHHY2011BR81294

PATIENT
  Age: 24 Year
  Sex: Female
  Weight: 48.1 kg

DRUGS (12)
  1. LOSARTAN POTASSIUM [Concomitant]
     Dosage: 100 MG, QD
  2. AMLODIPINE [Concomitant]
     Dosage: 10 MG, QD
  3. CAPTOPRIL [Concomitant]
  4. SIMVASTATIN [Concomitant]
     Dosage: 20 MG, QD
  5. HUMINSULIN BASAL (NPH) [Concomitant]
  6. RASILEZ [Suspect]
     Dosage: 300 MG, QD
     Dates: start: 20090713
  7. CHLORTHALIDONE [Concomitant]
     Dosage: 25 MG, QD
  8. OMEPRAZOLE [Concomitant]
  9. RASILEZ [Suspect]
     Indication: PROTEINURIA
     Dosage: 150 MG, QD
     Dates: start: 20090605
  10. ALLOPURINOL [Concomitant]
     Dosage: 100 MG, QD
  11. FUROSEMIDE [Concomitant]
     Dosage: 120 MG, QD
  12. METOPROLOL SUCCINATE [Concomitant]

REACTIONS (7)
  - BLOOD CREATININE INCREASED [None]
  - BLOOD PHOSPHORUS INCREASED [None]
  - GLYCOSYLATED HAEMOGLOBIN INCREASED [None]
  - BLOOD UREA INCREASED [None]
  - PROTEINURIA [None]
  - BLOOD PRESSURE DECREASED [None]
  - BLOOD GLUCOSE INCREASED [None]
